FAERS Safety Report 5475206-3 (Version None)
Quarter: 2007Q4

REPORT INFORMATION
  Report Type: 
  Country: None (occurrence: None)
  Receive Date: 20071002
  Receipt Date: 20070920
  Transmission Date: 20080405
  Serious: Yes (Death, Life-Threatening)
  Sender: FDA-Public Use
  Company Number: CZ-PFIZER INC-2007079096

PATIENT
  Age: 46 Year
  Sex: Male

DRUGS (9)
  1. LYRICA [Suspect]
     Indication: EPILEPSY
     Route: 048
  2. PHENYTOIN [Concomitant]
  3. CARBAMAZEPINE [Concomitant]
  4. VALPROATE SODIUM [Concomitant]
  5. LEVETIRACETAM [Concomitant]
  6. TOPIRAMATE [Concomitant]
  7. METHYLPREDNISOLONE [Concomitant]
  8. CYCLOPHOSPHAMIDE [Concomitant]
  9. AZATHIOPRINE [Concomitant]

REACTIONS (2)
  - BRONCHOPNEUMONIA [None]
  - DRUG INEFFECTIVE [None]
